FAERS Safety Report 10550227 (Version 2)
Quarter: 2014Q4

REPORT INFORMATION
  Report Type: Report from Study
  Country: US (occurrence: US)
  Receive Date: 20141028
  Receipt Date: 20141028
  Transmission Date: 20150529
  Serious: Yes (Death)
  Sender: FDA-Public Use
  Company Number: US-MYLANLABS-2014SP005495

PATIENT

DRUGS (3)
  1. CYTARABINE. [Suspect]
     Active Substance: CYTARABINE
     Indication: ACUTE MYELOID LEUKAEMIA
     Dosage: 218 MG, UNK
     Route: 042
     Dates: start: 20140630, end: 20140706
  2. PF-04449913 [Suspect]
     Active Substance: GLASDEGIB
     Indication: ACUTE MYELOID LEUKAEMIA
     Route: 048
     Dates: start: 20140627, end: 20140722
  3. DAUNORUBICIN [Suspect]
     Active Substance: DAUNORUBICIN
     Indication: ACUTE MYELOID LEUKAEMIA
     Dosage: 130 MG, QD, DAYS 1-3
     Route: 040
     Dates: start: 20140630, end: 20140702

REACTIONS (2)
  - Disease progression [Fatal]
  - Acute myeloid leukaemia [Fatal]

NARRATIVE: CASE EVENT DATE: 20140626
